FAERS Safety Report 7928263-6 (Version None)
Quarter: 2011Q4

REPORT INFORMATION
  Report Type: 
  Country: None (occurrence: None)
  Receive Date: 20111118
  Receipt Date: 20111107
  Transmission Date: 20120403
  Serious: Yes (Other)
  Sender: FDA-Public Use
  Company Number: JP-MERCK-1110USA03352

PATIENT
  Age: 67 Year
  Sex: Female

DRUGS (2)
  1. PREDNISOLONE [Concomitant]
     Indication: RHEUMATOID ARTHRITIS
     Dosage: 7.5-15 MG / DAILY DOSE UNKNOWN / POR
     Route: 048
  2. FOSAMAX [Suspect]
     Route: 048

REACTIONS (2)
  - ULCER [None]
  - OSTEONECROSIS [None]
